FAERS Safety Report 9164485 (Version 1)
Quarter: 2013Q1

REPORT INFORMATION
  Report Type: Spontaneous
  Country: DK (occurrence: None)
  Receive Date: 20130221
  Receipt Date: 20130221
  Transmission Date: 20140127
  Serious: Yes (Hospitalization)
  Sender: FDA-Public Use
  Company Number: 2013MA001218

PATIENT
  Age: 68 Year
  Sex: Female

DRUGS (11)
  1. METFORMIN HYDROCHLORIDE [Suspect]
     Indication: TYPE 1 DIABETES MELLITUS
     Route: 051
     Dates: start: 20030408, end: 20120725
  2. PERINDOPRIL [Concomitant]
  3. FUROSEMIDE [Concomitant]
  4. AMLODIPINE [Concomitant]
  5. ATENOLOL [Concomitant]
  6. FERROUS SULPHATE [Concomitant]
  7. CETIRIZINE [Concomitant]
  8. HYDROXYZINE [Concomitant]
  9. AMITRIPTYLINE [Concomitant]
  10. HUMULIN [Concomitant]
  11. SIMVASTATIN [Concomitant]

REACTIONS (6)
  - Malaise [None]
  - Dysarthria [None]
  - Hypotension [None]
  - Blood urea increased [None]
  - Blood creatinine increased [None]
  - Blood pH decreased [None]
